FAERS Safety Report 7548358-9 (Version None)
Quarter: 2011Q2

REPORT INFORMATION
  Report Type: 
  Country: None (occurrence: None)
  Receive Date: 20110524
  Receipt Date: 20110202
  Transmission Date: 20111010
  Serious: No
  Sender: FDA-Public Use
  Company Number: 026765

PATIENT
  Sex: Male

DRUGS (2)
  1. CIMZIA [Suspect]
     Indication: CROHN'S DISEASE
     Dosage: (SUBCUTANEOUS), (200 MG 1X/MONTH SUBCUTANEOUS)
     Route: 058
     Dates: start: 20101005
  2. CIMZIA [Suspect]
     Indication: CROHN'S DISEASE
     Dosage: (SUBCUTANEOUS), (200 MG 1X/MONTH SUBCUTANEOUS)
     Route: 058
     Dates: end: 20110104

REACTIONS (1)
  - INCORRECT DOSE ADMINISTERED [None]
